FAERS Safety Report 7380806-X (Version None)
Quarter: 2011Q1

REPORT INFORMATION
  Report Type: 
  Country: None (occurrence: None)
  Receive Date: 20110329
  Receipt Date: 20110316
  Transmission Date: 20110831
  Serious: Yes (Other)
  Sender: FDA-Public Use
  Company Number: A0914672A

PATIENT
  Age: 64 Year
  Sex: Male

DRUGS (12)
  1. VITAMIN D [Concomitant]
  2. REQUIP XL [Suspect]
     Indication: RESTLESS LEGS SYNDROME
     Dosage: 2MG PER DAY
     Route: 048
     Dates: start: 20101201
  3. ASCORBIC ACID [Concomitant]
  4. GABAPENTIN [Concomitant]
  5. REQUIP [Suspect]
     Indication: RESTLESS LEGS SYNDROME
     Dosage: .25MG PER DAY
     Route: 048
     Dates: start: 20050801, end: 20101201
  6. OMEGA FISH OIL [Concomitant]
  7. MULTI-VITAMIN [Concomitant]
  8. LISINOPRIL AND HYDROCHLOROTHIAZIDE [Concomitant]
  9. FLINTSTONE VITAMINS [Concomitant]
  10. GABAPENTIN [Suspect]
     Indication: PRODUCT USED FOR UNKNOWN INDICATION
     Dosage: 600MG TWICE PER DAY
     Route: 065
  11. CALCIUM [Concomitant]
  12. LOVASTATIN [Concomitant]

REACTIONS (7)
  - SOMNOLENCE [None]
  - LOSS OF CONSCIOUSNESS [None]
  - DYSKINESIA [None]
  - DRUG INEFFECTIVE [None]
  - FEELING ABNORMAL [None]
  - DRUG ADMINISTRATION ERROR [None]
  - RESTLESS LEGS SYNDROME [None]
